FAERS Safety Report 6907820-X (Version None)
Quarter: 2010Q3

REPORT INFORMATION
  Report Type: 
  Country: None (occurrence: None)
  Receive Date: 20100712
  Receipt Date: 20100612
  Transmission Date: 20110219
  Serious: No
  Sender: FDA-Public Use
  Company Number: US-000036

PATIENT
  Sex: Female
  Weight: 45.3597 kg

DRUGS (4)
  1. KUVAN [Suspect]
     Indication: PHENYLKETONURIA
     Dosage: (900 MG QD ORAL), (900 MG QD ORAL)
     Route: 048
     Dates: start: 20091211, end: 20100301
  2. KUVAN [Suspect]
     Indication: PHENYLKETONURIA
     Dosage: (900 MG QD ORAL), (900 MG QD ORAL)
     Route: 048
     Dates: start: 20100301, end: 20100401
  3. KUVAN [Suspect]
  4. CEPHALEXIN [Concomitant]

REACTIONS (17)
  - ABDOMINAL PAIN UPPER [None]
  - ASTHMA [None]
  - CHEST DISCOMFORT [None]
  - CONJUNCTIVITIS [None]
  - COUGH [None]
  - DYSPNOEA [None]
  - EAR INFECTION [None]
  - HEADACHE [None]
  - INFECTION [None]
  - PHARYNGEAL OEDEMA [None]
  - PHARYNGITIS [None]
  - PHARYNGITIS STREPTOCOCCAL [None]
  - PYREXIA [None]
  - RESPIRATORY FAILURE [None]
  - RESPIRATORY RATE INCREASED [None]
  - VOMITING [None]
  - WEIGHT DECREASED [None]
